FAERS Safety Report 10813736 (Version 1)
Quarter: 2015Q1

REPORT INFORMATION
  Report Type: Report from Study
  Country: US (occurrence: US)
  Receive Date: 20150218
  Receipt Date: 20150218
  Transmission Date: 20150721
  Serious: No
  Sender: FDA-Public Use
  Company Number: US-ABBVIE-14K-163-1276895-00

PATIENT
  Age: 51 Year
  Sex: Female

DRUGS (1)
  1. HUMIRA [Suspect]
     Active Substance: ADALIMUMAB
     Indication: CROHN^S DISEASE
     Dates: start: 20140717, end: 20140814

REACTIONS (8)
  - Adverse drug reaction [Not Recovered/Not Resolved]
  - Musculoskeletal chest pain [Unknown]
  - Blood glucose increased [Unknown]
  - Night sweats [Unknown]
  - Dizziness [Unknown]
  - Liver function test abnormal [Unknown]
  - Blood pressure increased [Unknown]
  - Dyspnoea [Unknown]

NARRATIVE: CASE EVENT DATE: 20140728
